FAERS Safety Report 6975325-6 (Version None)
Quarter: 2010Q3

REPORT INFORMATION
  Report Type: 
  Country: None (occurrence: None)
  Receive Date: 20100910
  Receipt Date: 20090312
  Transmission Date: 20110219
  Serious: No
  Sender: FDA-Public Use
  Company Number: US-WYE-H08567409

PATIENT
  Sex: Male

DRUGS (2)
  1. ADVIL PM [Suspect]
     Dosage: UNKNOWN
     Route: 048
  2. AMBIEN [Suspect]
     Dosage: UNKNOWN
     Route: 048

REACTIONS (2)
  - DRUG EFFECT PROLONGED [None]
  - SOMNOLENCE [None]
